FAERS Safety Report 4402838-3 (Version None)
Quarter: 2004Q3

REPORT INFORMATION
  Report Type: 
  Country: None (occurrence: None)
  Receive Date: 20040721
  Receipt Date: 20040714
  Transmission Date: 20050211
  Serious: Yes (Other)
  Sender: FDA-Public Use
  Company Number: 200416971GDDC

PATIENT
  Age: 57 Year
  Sex: Male

DRUGS (7)
  1. LEFLUNOMIDE [Suspect]
     Indication: RHEUMATOID ARTHRITIS
     Route: 048
     Dates: start: 20031201
  2. PREDNISOLONE [Suspect]
     Indication: RHEUMATOID ARTHRITIS
     Route: 048
     Dates: start: 20030101
  3. BENDROFLUAZIDE [Concomitant]
  4. OMEPRAZOLE [Concomitant]
  5. ATENOLOL [Concomitant]
  6. FOLIC ACID [Concomitant]
     Dosage: DOSE: UNK
  7. AMITRIPTYLINE HCL [Concomitant]

REACTIONS (3)
  - DRUG INTERACTION [None]
  - DYSPHAGIA [None]
  - HYPOACUSIS [None]
